FAERS Safety Report 5616357-X (Version None)
Quarter: 2008Q1

REPORT INFORMATION
  Report Type: 
  Country: None (occurrence: None)
  Receive Date: 20080205
  Receipt Date: 20080205
  Transmission Date: 20080703
  Serious: Yes (Other)
  Sender: FDA-Public Use
  Company Number: None

PATIENT
  Sex: Female

DRUGS (1)
  1. ULTRAM [Suspect]
     Indication: FIBROMYALGIA
     Dosage: 50MG ONE TID
     Dates: start: 20020101

REACTIONS (2)
  - PRURITUS [None]
  - URTICARIA [None]
